FAERS Safety Report 12718545 (Version 5)
Quarter: 2018Q2

REPORT INFORMATION
  Report Type: Spontaneous
  Country: IE (occurrence: IE)
  Receive Date: 20160906
  Receipt Date: 20180510
  Transmission Date: 20180711
  Serious: Yes (Hospitalization, Other)
  Sender: FDA-Public Use
  Company Number: IE-009507513-1609IRL001273

PATIENT
  Age: 60 Year
  Sex: Male

DRUGS (13)
  1. SIMVASTATIN. [Suspect]
     Active Substance: SIMVASTATIN
     Route: 048
  2. GLICLAZIDE [Concomitant]
     Active Substance: GLICLAZIDE
  3. VALSARTAN. [Concomitant]
     Active Substance: VALSARTAN
  4. BISOPROLOL [Concomitant]
     Active Substance: BISOPROLOL
  5. COLCHICINE. [Interacting]
     Active Substance: COLCHICINE
     Indication: GOUT
     Dosage: 0.5 MG, TID
  6. COLCHICINE. [Interacting]
     Active Substance: COLCHICINE
  7. ASPIRIN. [Concomitant]
     Active Substance: ASPIRIN
  8. FUROSEMIDE. [Concomitant]
     Active Substance: FUROSEMIDE
  9. COLCHICINE. [Interacting]
     Active Substance: COLCHICINE
     Dosage: 0.5 MG, QD
  10. AMLODIPINE [Concomitant]
     Active Substance: AMLODIPINE BESYLATE
  11. COLCHICINE. [Interacting]
     Active Substance: COLCHICINE
     Dosage: 0.5 MG, QD
  12. LISINOPRIL. [Concomitant]
     Active Substance: LISINOPRIL
  13. ALFACALCIDOL [Concomitant]
     Active Substance: ALFACALCIDOL

REACTIONS (3)
  - Drug interaction [Recovered/Resolved]
  - Neuromyopathy [Recovered/Resolved]
  - Toxicity to various agents [Recovered/Resolved]
